FAERS Safety Report 7808504-6 (Version None)
Quarter: 2011Q4

REPORT INFORMATION
  Report Type: 
  Country: None (occurrence: None)
  Receive Date: 20111012
  Receipt Date: 20110930
  Transmission Date: 20120403
  Serious: Yes (Other)
  Sender: FDA-Public Use
  Company Number: US-JNJFOC-20111001240

PATIENT
  Sex: Female

DRUGS (1)
  1. INVEGA SUSTENNA [Suspect]
     Indication: BIPOLAR DISORDER
     Route: 030
     Dates: start: 20110901, end: 20110901

REACTIONS (8)
  - CONFUSIONAL STATE [None]
  - FALL [None]
  - BLOOD PRESSURE INCREASED [None]
  - MOTOR DYSFUNCTION [None]
  - VIITH NERVE PARALYSIS [None]
  - SPEECH DISORDER [None]
  - TREMOR [None]
  - URINARY INCONTINENCE [None]
